FAERS Safety Report 23223955 (Version 1)
Quarter: 2023Q4

REPORT INFORMATION
  Report Type: Spontaneous
  Country: NL (occurrence: NL)
  Receive Date: 20231124
  Receipt Date: 20231124
  Transmission Date: 20240110
  Serious: Yes (Other)
  Sender: FDA-Public Use
  Company Number: NL-ABBVIE-5323200

PATIENT
  Sex: Male

DRUGS (4)
  1. ADALIMUMAB [Suspect]
     Active Substance: ADALIMUMAB\ISOPROPYL ALCOHOL
     Indication: Crohn^s disease
     Dosage: UNK
     Route: 058
     Dates: end: 2022
  2. PREDNISONE [Concomitant]
     Active Substance: PREDNISONE
     Indication: Product used for unknown indication
     Dosage: UNK
     Route: 065
  3. USTEKINUMAB [Concomitant]
     Active Substance: USTEKINUMAB
     Indication: Product used for unknown indication
     Dosage: UNK
     Route: 065
     Dates: start: 202209
  4. USTEKINUMAB [Concomitant]
     Active Substance: USTEKINUMAB
     Dosage: UNK
     Route: 065
     Dates: start: 2020

REACTIONS (10)
  - Ileocaecal resection [Unknown]
  - Crohn^s disease [Unknown]
  - C-reactive protein abnormal [Unknown]
  - Unevaluable event [Unknown]
  - Drug specific antibody present [Unknown]
  - Faecal calprotectin abnormal [Unknown]
  - Haematochezia [Unknown]
  - Fistula [Unknown]
  - Anaemia [Unknown]
  - Inflammation [Unknown]

NARRATIVE: CASE EVENT DATE: 20220101
